FAERS Safety Report 5669278-0 (Version None)
Quarter: 2008Q1

REPORT INFORMATION
  Report Type: 
  Country: None (occurrence: None)
  Receive Date: 20080313
  Receipt Date: 20080313
  Transmission Date: 20080703
  Serious: Yes (Other)
  Sender: FDA-Public Use
  Company Number: None

PATIENT
  Sex: Male
  Weight: 67.1324 kg

DRUGS (3)
  1. ZYVOX [Suspect]
     Indication: MYCOBACTERIUM AVIUM COMPLEX INFECTION
     Dosage: 600 MG BID PO
     Route: 048
     Dates: start: 20070926, end: 20080311
  2. MOXIFLOXICIN [Concomitant]
  3. CLARITHROMYCIN [Concomitant]

REACTIONS (1)
  - OPTIC NEURITIS [None]
